FAERS Safety Report 10511180 (Version 1)
Quarter: 2014Q4

REPORT INFORMATION
  Report Type: Spontaneous
  Country: BE (occurrence: None)
  Receive Date: 20141008
  Receipt Date: 20141008
  Transmission Date: 20150528
  Serious: Yes (Hospitalization)
  Sender: FDA-Public Use
  Company Number: FK201403904

PATIENT
  Age: 68 Year
  Sex: Female

DRUGS (1)
  1. CISPLATIN (MANUFACTURER UNKNOWN) (CISPLATIN) (CISPLATIN) [Suspect]
     Active Substance: CISPLATIN
     Indication: NONKERATINISING CARCINOMA OF NASOPHARYNX

REACTIONS (4)
  - Mucosal inflammation [None]
  - Recall phenomenon [None]
  - Dermatitis [None]
  - Rash papular [None]
